FAERS Safety Report 18126994 (Version 1)
Quarter: 2020Q3

REPORT INFORMATION
  Report Type: Spontaneous
  Country: US (occurrence: US)
  Receive Date: 20200810
  Receipt Date: 20200810
  Transmission Date: 20201103
  Serious: Yes (Congenital Anomaly)
  Sender: FDA-Public Use
  Company Number: US-ROCHE-2656228

PATIENT

DRUGS (1)
  1. OCREVUS [Suspect]
     Active Substance: OCRELIZUMAB
     Indication: RELAPSING MULTIPLE SCLEROSIS
     Route: 065
     Dates: start: 201906, end: 201912

REACTIONS (6)
  - Ventricular hypoplasia [Unknown]
  - Congenital choroid plexus cyst [Unknown]
  - Ventricular septal defect [Unknown]
  - Septum pellucidum agenesis [Unknown]
  - Congenital aortic stenosis [Unknown]
  - Foetal exposure during pregnancy [Unknown]
